FAERS Safety Report 15268619 (Version 3)
Quarter: 2018Q3

REPORT INFORMATION
  Report Type: Spontaneous
  Country: DE (occurrence: DE)
  Receive Date: 20180812
  Receipt Date: 20180913
  Transmission Date: 20181010
  Serious: Yes (Hospitalization, Other)
  Sender: FDA-Public Use
  Company Number: DE-009507513-1808DEU003205

PATIENT
  Age: 60 Year
  Sex: Female
  Weight: 78 kg

DRUGS (9)
  1. PANTOPRAZOLE [Concomitant]
     Active Substance: PANTOPRAZOLE
     Indication: GASTRITIS
     Dosage: 40 MG, QAM (ONE TABLET IN THE MORNING)
     Route: 048
  2. KEYTRUDA [Suspect]
     Active Substance: PEMBROLIZUMAB
     Indication: NON-SMALL CELL LUNG CANCER METASTATIC
     Dosage: 50 MG, Q3W; TOTAL DOSE: 200 MG, EVERY 3 WEEKS
     Dates: start: 20171211, end: 20180718
  3. AMLODIPINE [Concomitant]
     Active Substance: AMLODIPINE BESYLATE
     Indication: HYPERTENSION
     Dosage: HALF A TABLET IN THE EVENING
     Route: 048
  4. CELIPRO [Concomitant]
     Indication: HYPERTENSION
     Dosage: 200 MG, BID (ONE TABLET IN THE MORNING, ONE TABLET IN THE EVENING)
     Route: 048
  5. HCT CT [Concomitant]
     Indication: HYPERTENSION
     Dosage: 25 MG, QAM (1 TABLET IN THE MORNING)
     Route: 048
  6. ASPIRIN. [Concomitant]
     Active Substance: ASPIRIN
     Indication: PERIPHERAL ARTERIAL OCCLUSIVE DISEASE
     Dosage: 100 MG (1 TABLET) IN THE MORNING
     Route: 048
  7. KEYTRUDA [Suspect]
     Active Substance: PEMBROLIZUMAB
     Dosage: 150 MG, Q3W; TOTAL DOSE: 200 MG, EVERY 3 WEEKS
     Dates: start: 20171211, end: 20180718
  8. MCP AL [Concomitant]
     Dosage: 10 MG, TID
     Route: 048
  9. RAMIPRIL. [Concomitant]
     Active Substance: RAMIPRIL
     Indication: HYPERTENSION
     Dosage: HALF A TABLET IN THE MORNING, HALF A TABLET IN THE EVENING
     Route: 048

REACTIONS (5)
  - Confusional state [Recovering/Resolving]
  - CSF lymphocyte count abnormal [Unknown]
  - General physical health deterioration [Recovering/Resolving]
  - Weight decreased [Recovering/Resolving]
  - Encephalitis [Recovering/Resolving]

NARRATIVE: CASE EVENT DATE: 201807
